FAERS Safety Report 18941953 (Version 4)
Quarter: 2021Q2

REPORT INFORMATION
  Report Type: Report from Study
  Country: US (occurrence: US)
  Receive Date: 20210225
  Receipt Date: 20210609
  Transmission Date: 20210717
  Serious: Yes (Hospitalization, Other)
  Sender: FDA-Public Use
  Company Number: US-TAKEDA-2020TUS049856

PATIENT
  Sex: Male

DRUGS (8)
  1. TEDUGLUTIDE [Suspect]
     Active Substance: TEDUGLUTIDE
     Indication: SHORT-BOWEL SYNDROME
     Dosage: 2.95 MILLIGRAM, EVERY OTHER DAY
     Route: 058
     Dates: start: 20201004
  2. TEDUGLUTIDE [Suspect]
     Active Substance: TEDUGLUTIDE
     Indication: SHORT-BOWEL SYNDROME
     Dosage: 2.95 MILLIGRAM, EVERY OTHER DAY
     Route: 058
     Dates: start: 20201004
  3. TEDUGLUTIDE [Suspect]
     Active Substance: TEDUGLUTIDE
     Indication: SHORT-BOWEL SYNDROME
     Dosage: 2.95 MILLIGRAM, EVERY OTHER DAY
     Route: 058
     Dates: start: 20201024
  4. TEDUGLUTIDE [Suspect]
     Active Substance: TEDUGLUTIDE
     Indication: SHORT-BOWEL SYNDROME
     Dosage: 2.95 MILLIGRAM, EVERY OTHER DAY
     Route: 058
     Dates: start: 20201004
  5. TEDUGLUTIDE [Suspect]
     Active Substance: TEDUGLUTIDE
     Indication: SHORT-BOWEL SYNDROME
     Dosage: 2.95 MILLIGRAM, EVERY OTHER DAY
     Route: 058
     Dates: start: 20201004
  6. TEDUGLUTIDE [Suspect]
     Active Substance: TEDUGLUTIDE
     Indication: SHORT-BOWEL SYNDROME
     Dosage: 2.95 MILLIGRAM, EVERY OTHER DAY
     Route: 058
     Dates: start: 20201024
  7. TEDUGLUTIDE [Suspect]
     Active Substance: TEDUGLUTIDE
     Indication: SHORT-BOWEL SYNDROME
     Dosage: 2.95 MILLIGRAM, EVERY OTHER DAY
     Route: 058
     Dates: start: 20201024
  8. TEDUGLUTIDE [Suspect]
     Active Substance: TEDUGLUTIDE
     Indication: SHORT-BOWEL SYNDROME
     Dosage: 2.95 MILLIGRAM, EVERY OTHER DAY
     Route: 058
     Dates: start: 20201024

REACTIONS (16)
  - Vascular device infection [Unknown]
  - Diarrhoea [Unknown]
  - Limb operation [Unknown]
  - Crohn^s disease [Unknown]
  - Panic attack [Unknown]
  - Fatigue [Unknown]
  - Headache [Unknown]
  - Chest pain [Unknown]
  - Product dose omission issue [Unknown]
  - Sepsis [Unknown]
  - Dehydration [Unknown]
  - Dyspnoea [Unknown]
  - Chromaturia [Unknown]
  - Intestinal obstruction [Unknown]
  - Arthralgia [Unknown]
  - Blood iron decreased [Unknown]
